FAERS Safety Report 12835946 (Version 7)
Quarter: 2017Q1

REPORT INFORMATION
  Report Type: Spontaneous
  Country: HU (occurrence: HU)
  Receive Date: 20161011
  Receipt Date: 20170125
  Transmission Date: 20170428
  Serious: Yes (Hospitalization, Other)
  Sender: FDA-Public Use
  Company Number: HU-PFIZER INC-2016131621

PATIENT
  Age: 66 Year
  Sex: Male

DRUGS (8)
  1. TELMISARTAN. [Concomitant]
     Active Substance: TELMISARTAN
     Dosage: UNK
  2. SUTENT [Suspect]
     Active Substance: SUNITINIB MALATE
     Indication: RENAL CANCER
     Dosage: 50 MG, CYCLIC (ONCE DAILY)
     Route: 048
     Dates: start: 20160110, end: 20160225
  3. SUTENT [Suspect]
     Active Substance: SUNITINIB MALATE
     Dosage: 50 MG ON UNEVEN DAYS, 25 MG ON EVEN DAYS, CYCLIC (2ND,3RD/6TH CYCLE, BEGINNING OF 7TH CYCLE)
     Route: 048
     Dates: start: 20160226, end: 20160924
  4. SUTENT [Suspect]
     Active Substance: SUNITINIB MALATE
     Dosage: 50 MG ON UNEVEN DAYS, 25 MG ON EVEN DAYS, CYCLIC (CONTINUING 7TH CYCLE)
     Route: 048
     Dates: start: 20161021, end: 20161103
  5. COVEREX AS [Concomitant]
     Active Substance: PERINDOPRIL ARGININE
     Dosage: UNK
  6. AMLODIPRESS 1 A PHARMA [Concomitant]
     Dosage: UNK
  7. CARDURA XL [Concomitant]
     Active Substance: DOXAZOSIN MESYLATE
     Dosage: UNK
  8. NEBILET [Concomitant]
     Active Substance: NEBIVOLOL
     Dosage: UNK

REACTIONS (13)
  - Dysuria [Recovering/Resolving]
  - Mucosal inflammation [Recovered/Resolved]
  - Blood pressure decreased [Unknown]
  - Hair colour changes [Unknown]
  - Inguinal hernia [Unknown]
  - Asthenia [Recovered/Resolved]
  - Alopecia [Unknown]
  - Haematuria [Recovered/Resolved]
  - Diarrhoea [Recovered/Resolved]
  - Dysgeusia [Recovered/Resolved]
  - Dermal cyst [Unknown]
  - Pain in extremity [Unknown]
  - Dry mouth [Unknown]

NARRATIVE: CASE EVENT DATE: 20160110
